FAERS Safety Report 14565856 (Version 2)
Quarter: 2018Q1

REPORT INFORMATION
  Report Type: Spontaneous
  Country: DE (occurrence: DE)
  Receive Date: 20180223
  Receipt Date: 20180313
  Transmission Date: 20180509
  Serious: No
  Sender: FDA-Public Use
  Company Number: DE-ROCHE-2074967

PATIENT
  Age: 52 Year
  Sex: Female
  Weight: 57 kg

DRUGS (5)
  1. HERCEPTIN [Concomitant]
     Active Substance: TRASTUZUMAB
     Dosage: THERAPY SCHEDULED UNTIL NOV/2018
     Route: 042
  2. HERCEPTIN [Concomitant]
     Active Substance: TRASTUZUMAB
     Indication: BREAST CANCER
     Dosage: INITIAL DOSE
     Route: 042
     Dates: start: 20171122
  3. TAXOL [Concomitant]
     Active Substance: PACLITAXEL
     Indication: BREAST CANCER
     Route: 042
     Dates: start: 20171122, end: 20180228
  4. PERJETA [Suspect]
     Active Substance: PERTUZUMAB
     Indication: BREAST CANCER
     Dosage: INITIAL DOSE
     Route: 042
     Dates: start: 20171122
  5. PERJETA [Suspect]
     Active Substance: PERTUZUMAB
     Route: 042
     Dates: end: 20180228

REACTIONS (1)
  - Psoriasis [Recovering/Resolving]

NARRATIVE: CASE EVENT DATE: 20180103
